FAERS Safety Report 13698464 (Version 3)
Quarter: 2017Q4

REPORT INFORMATION
  Report Type: Spontaneous
  Country: US (occurrence: US)
  Receive Date: 20170628
  Receipt Date: 20171109
  Transmission Date: 20180320
  Serious: Yes (Other)
  Sender: FDA-Public Use
  Company Number: US-BRISTOL-MYERS SQUIBB COMPANY-BMS-2017-056917

PATIENT
  Sex: Male

DRUGS (1)
  1. YERVOY [Suspect]
     Active Substance: IPILIMUMAB
     Indication: MALIGNANT MELANOMA
     Dosage: 1488 MG, Q3MO
     Route: 042
     Dates: start: 20160630, end: 20170413

REACTIONS (4)
  - Malaise [Unknown]
  - Malignant neoplasm progression [Unknown]
  - Off label use [Unknown]
  - Rash [Unknown]
